FAERS Safety Report 4692324-8 (Version None)
Quarter: 2005Q2

REPORT INFORMATION
  Report Type: 
  Country: None (occurrence: None)
  Receive Date: 20050616
  Receipt Date: 20050531
  Transmission Date: 20051028
  Serious: Yes (Hospitalization, Other)
  Sender: FDA-Public Use
  Company Number: 2005-05-2435

PATIENT
  Sex: Female

DRUGS (4)
  1. CLARITIN-D 24 HOUR [Suspect]
     Indication: COUGH
     Dosage: ORAL
     Route: 048
     Dates: start: 20050528, end: 20050528
  2. CLARITIN-D 24 HOUR [Suspect]
     Indication: INFLUENZA
     Dosage: ORAL
     Route: 048
     Dates: start: 20050528, end: 20050528
  3. PROPANOLOL TABLETS [Concomitant]
  4. CAPTOPRIL [Concomitant]

REACTIONS (3)
  - CONFUSIONAL STATE [None]
  - INSOMNIA [None]
  - LOSS OF CONSCIOUSNESS [None]
